FAERS Safety Report 21372218 (Version 1)
Quarter: 2022Q3

REPORT INFORMATION
  Report Type: Spontaneous
  Country: US (occurrence: US)
  Receive Date: 20220924
  Receipt Date: 20220924
  Transmission Date: 20221027
  Serious: Yes (Hospitalization)
  Sender: FDA-Public Use
  Company Number: US-UNITED THERAPEUTICS-UNT-2022-021624

PATIENT
  Age: 66 Year
  Sex: Male

DRUGS (2)
  1. REMODULIN [Suspect]
     Active Substance: TREPROSTINIL
     Indication: Pulmonary arterial hypertension
     Dosage: UNK, CONTINUING
     Route: 058
     Dates: start: 20200318
  2. REMODULIN [Suspect]
     Active Substance: TREPROSTINIL
     Dosage: 0.0458 ?G/KG, CONTINUING
     Route: 058

REACTIONS (2)
  - Dyspnoea [Unknown]
  - Device occlusion [Unknown]

NARRATIVE: CASE EVENT DATE: 20220915
